FAERS Safety Report 7740057 (Version 3)
Quarter: 2013Q4

REPORT INFORMATION
  Report Type: Spontaneous
  Country: US (occurrence: US)
  Receive Date: 20101227
  Receipt Date: 20131111
  Transmission Date: 20140711
  Serious: Yes (Death, Other)
  Sender: FDA-Public Use
  Company Number: US-BAYER-2010-007132

PATIENT
  Age: 18 Year
  Sex: Female

DRUGS (3)
  1. YASMIN [Suspect]
     Indication: ACNE
     Dosage: UNK
     Dates: start: 200201, end: 201003
  2. TRIAMCINOLONE [Concomitant]
     Dosage: 0.1 %, UNK
  3. CEFACLOR [Concomitant]
     Dosage: 250 MG/5 ML

REACTIONS (6)
  - Cholelithiasis [None]
  - Cholecystitis chronic [None]
  - Death [Fatal]
  - Pain [None]
  - Anxiety [None]
  - Emotional distress [None]
